FAERS Safety Report 14915489 (Version 1)
Quarter: 2018Q2

REPORT INFORMATION
  Report Type: Spontaneous
  Country: FR (occurrence: FR)
  Receive Date: 20180518
  Receipt Date: 20180518
  Transmission Date: 20180711
  Serious: Yes (Other)
  Sender: FDA-Public Use
  Company Number: FR-OTSUKA-2018_010886

PATIENT
  Age: 45 Year
  Sex: Male

DRUGS (1)
  1. ABILIFY MAINTENA [Suspect]
     Active Substance: ARIPIPRAZOLE
     Indication: PRODUCT USED FOR UNKNOWN INDICATION
     Dosage: 400 MG, QM
     Route: 030
     Dates: start: 20171207

REACTIONS (4)
  - Apnoea [Recovered/Resolved]
  - Fibrin D dimer increased [Not Recovered/Not Resolved]
  - Peripheral swelling [Recovering/Resolving]
  - Acne [Recovered/Resolved]

NARRATIVE: CASE EVENT DATE: 20180408
